FAERS Safety Report 5119456-4 (Version None)
Quarter: 2006Q3

REPORT INFORMATION
  Report Type: 
  Country: None (occurrence: None)
  Receive Date: 20060929
  Receipt Date: 20060829
  Transmission Date: 20061208
  Serious: Yes (Other)
  Sender: FDA-Public Use
  Company Number: 2006113148

PATIENT
  Sex: Female

DRUGS (1)
  1. ADRIAMYCIN PFS [Suspect]

REACTIONS (3)
  - ANGIOPATHY [None]
  - NEUROPATHY [None]
  - PERICARDIAL EFFUSION [None]
